FAERS Safety Report 8743165 (Version 7)
Quarter: 2017Q2

REPORT INFORMATION
  Report Type: Spontaneous
  Country: US (occurrence: US)
  Receive Date: 20120824
  Receipt Date: 20170623
  Transmission Date: 20170830
  Serious: Yes (Hospitalization, Disabling, Other)
  Sender: FDA-Public Use
  Company Number: US-009507513-1208USA007024

PATIENT
  Sex: Female

DRUGS (5)
  1. FOSAMAX [Suspect]
     Active Substance: ALENDRONATE SODIUM
     Indication: OSTEOPENIA
     Dosage: 70 MG, QW
     Route: 048
     Dates: start: 199705
  2. FOSAMAX PLUS D [Suspect]
     Active Substance: ALENDRONATE SODIUM\CHOLECALCIFEROL
     Indication: OSTEOPENIA
  3. ALENDRONATE SODIUM. [Suspect]
     Active Substance: ALENDRONATE SODIUM
     Dosage: 70 MG, UNKNOWN
     Route: 048
  4. FOSAMAX PLUS D [Suspect]
     Active Substance: ALENDRONATE SODIUM\CHOLECALCIFEROL
     Indication: OSTEOPOROSIS
     Dosage: 70 MG, UNKNOWN
     Route: 048
  5. FOSAMAX [Suspect]
     Active Substance: ALENDRONATE SODIUM
     Indication: OSTEOPOROSIS
     Dosage: 10 MG, QD
     Route: 048
     Dates: start: 19961022

REACTIONS (21)
  - Low turnover osteopathy [Unknown]
  - Hysterectomy [Unknown]
  - Facet joint syndrome [Unknown]
  - Spinal osteoarthritis [Unknown]
  - Cystopexy [Unknown]
  - Endodontic procedure [Unknown]
  - Radius fracture [Unknown]
  - Postmenopausal haemorrhage [Unknown]
  - Headache [Unknown]
  - Arthralgia [Unknown]
  - Vertebral wedging [Unknown]
  - Cellulitis [Unknown]
  - Abdominal discomfort [Unknown]
  - Bone pain [Unknown]
  - Open reduction of fracture [Unknown]
  - Ulna fracture [Unknown]
  - Osteopenia [Unknown]
  - Anal incontinence [Unknown]
  - Femur fracture [Unknown]
  - Gait disturbance [Unknown]
  - Osteoarthritis [Unknown]

NARRATIVE: CASE EVENT DATE: 19970301
